FAERS Safety Report 19963659 (Version 6)
Quarter: 2022Q3

REPORT INFORMATION
  Report Type: Spontaneous
  Country: US (occurrence: US)
  Receive Date: 20211018
  Receipt Date: 20220812
  Transmission Date: 20221027
  Serious: No
  Sender: FDA-Public Use
  Company Number: US-AIMMUNE THERAPEUTICS, INC.-2021AIMT00620

PATIENT

DRUGS (13)
  1. PALFORZIA [Suspect]
     Active Substance: PEANUT
     Indication: Food allergy
     Dosage: 6 MG, 1X/DAY
     Route: 048
     Dates: start: 20211001, end: 20211125
  2. PALFORZIA [Suspect]
     Active Substance: PEANUT
     Dosage: 6 MG, ONCE, LAST DOSE PRIOR ABDOMINAL PAIN
     Route: 048
     Dates: start: 20211014, end: 20211014
  3. PALFORZIA [Suspect]
     Active Substance: PEANUT
     Dosage: 40 MG, 1X/DAY
     Route: 048
     Dates: start: 20211126, end: 20211209
  4. PALFORZIA [Suspect]
     Active Substance: PEANUT
     Dosage: 40 MG, ONCE, LAST DOSE PRIOR VOMITING
     Route: 048
     Dates: start: 20211126, end: 20211126
  5. PALFORZIA [Suspect]
     Active Substance: PEANUT
     Dosage: 80 MG, 1X/DAY
     Route: 048
     Dates: start: 20211210, end: 20211223
  6. PALFORZIA [Suspect]
     Active Substance: PEANUT
     Dosage: 120 MG, 1X/DAY
     Route: 048
     Dates: start: 20211224, end: 202201
  7. PALFORZIA [Suspect]
     Active Substance: PEANUT
     Dosage: 160 MG, 1X/DAY
     Route: 048
     Dates: start: 202201, end: 20220123
  8. PALFORZIA [Suspect]
     Active Substance: PEANUT
     Dosage: 160 MG, ONCE, LAST DOSE PRIOR EXPOSURE TO COVID
     Route: 048
     Dates: start: 202201, end: 202201
  9. PALFORZIA [Suspect]
     Active Substance: PEANUT
     Dosage: 200 MG, 1X/DAY
     Route: 048
     Dates: start: 20220221, end: 202202
  10. PALFORZIA [Suspect]
     Active Substance: PEANUT
     Dosage: 160 MG, 1X/DAY, DOSE RESTRATED AT DECREASED LEVEL
     Route: 048
     Dates: start: 20220322
  11. PALFORZIA [Suspect]
     Active Substance: PEANUT
     Dosage: 240 MG, 1X/DAY
     Route: 048
     Dates: start: 20220429, end: 20220526
  12. PALFORZIA [Suspect]
     Active Substance: PEANUT
     Dosage: 240 MG, ONCE, LAST DOSE PRIOR VIRAL INFECTION
     Route: 048
     Dates: start: 20220511, end: 20220511
  13. PALFORZIA [Suspect]
     Active Substance: PEANUT
     Dosage: 300 MG, 1X/DAY
     Route: 048
     Dates: start: 20220527

REACTIONS (13)
  - Gastrointestinal viral infection [Recovered/Resolved]
  - Pyrexia [Recovered/Resolved]
  - Diarrhoea [Recovered/Resolved]
  - Viral infection [Recovered/Resolved]
  - Nasal congestion [Recovered/Resolved]
  - Cough [Recovered/Resolved]
  - Exposure to SARS-CoV-2 [Recovered/Resolved]
  - Eosinophilic oesophagitis [Unknown]
  - Vomiting [Recovered/Resolved]
  - Abdominal pain [Recovered/Resolved]
  - Anaphylactic reaction [Recovered/Resolved]
  - Vomiting [Recovered/Resolved]
  - Abdominal discomfort [Recovered/Resolved]

NARRATIVE: CASE EVENT DATE: 20211001
